FAERS Safety Report 19245545 (Version 1)
Quarter: 2021Q2

REPORT INFORMATION
  Report Type: Spontaneous
  Country: US (occurrence: US)
  Receive Date: 20210512
  Receipt Date: 20210512
  Transmission Date: 20210717
  Serious: Yes (Death, Other)
  Sender: FDA-Public Use
  Company Number: US-SA-2021SA157350

PATIENT
  Age: 47 Year
  Sex: Male

DRUGS (2)
  1. ZANTAC [Suspect]
     Active Substance: RANITIDINE HYDROCHLORIDE
     Indication: HYPERCHLORHYDRIA
     Dosage: 75 MG, QD
     Dates: start: 199801, end: 201501
  2. ZANTAC [Suspect]
     Active Substance: RANITIDINE HYDROCHLORIDE
     Indication: DYSPEPSIA

REACTIONS (2)
  - Gastric cancer stage IV [Fatal]
  - Oesophageal carcinoma [Fatal]

NARRATIVE: CASE EVENT DATE: 20150101
